FAERS Safety Report 14342297 (Version 1)
Quarter: 2017Q4

REPORT INFORMATION
  Report Type: Spontaneous
  Country: US (occurrence: US)
  Receive Date: 20171229
  Receipt Date: 20171229
  Transmission Date: 20180321
  Serious: Yes (Hospitalization)
  Sender: FDA-Public Use
  Company Number: None

PATIENT
  Age: 66 Year
  Sex: Male
  Weight: 83 kg

DRUGS (2)
  1. ELECTROLYTES [Suspect]
     Active Substance: ELECTROLYTES NOS
     Indication: COLONIC LAVAGE
     Route: 048
     Dates: start: 20171011, end: 20171011
  2. LISINOPRIL. [Suspect]
     Active Substance: LISINOPRIL
     Indication: HYPERTENSION
     Route: 048
     Dates: start: 20170620, end: 20171012

REACTIONS (1)
  - Angioedema [None]

NARRATIVE: CASE EVENT DATE: 20171012
